FAERS Safety Report 4987791-6 (Version None)
Quarter: 2006Q2

REPORT INFORMATION
  Report Type: 
  Country: None (occurrence: None)
  Receive Date: 20060426
  Receipt Date: 20060410
  Transmission Date: 20061013
  Serious: Yes (Death, Other)
  Sender: FDA-Public Use
  Company Number: DE200601001723

PATIENT
  Age: 70 Year
  Sex: Female
  Weight: 116 kg

DRUGS (10)
  1. ZYPREXA [Suspect]
     Indication: SCHIZOAFFECTIVE DISORDER
     Dosage: 10 MG, EACH MORNING , ORAL
     Route: 048
     Dates: end: 20060109
  2. ZYPREXA [Suspect]
     Dosage: 15 MG, EACH EVENING, ORAL
     Route: 048
     Dates: start: 20051229, end: 20060109
  3. LITHIUM [Concomitant]
  4. SPIRONOLACTONE [Concomitant]
  5. PANTOZOL (PANTOPRAZOLE SODIUM) [Concomitant]
  6. TOREM (TORASEMIDE) [Concomitant]
  7. ATACAND [Concomitant]
  8. ALLOPURINOL [Concomitant]
  9. CYANOCOBALAMIN [Concomitant]
  10. LAUBEEL (LORAZEPAM) [Concomitant]

REACTIONS (28)
  - ACUTE LEFT VENTRICULAR FAILURE [None]
  - ARTERIOSCLEROSIS [None]
  - ARTERIOSCLEROSIS CORONARY ARTERY [None]
  - BLADDER DILATATION [None]
  - CARDIOMEGALY [None]
  - CELL DEATH [None]
  - DILATATION VENTRICULAR [None]
  - EMPHYSEMA [None]
  - GASTROINTESTINAL NECROSIS [None]
  - GOITRE [None]
  - HEPATIC FIBROSIS [None]
  - HEPATIC STEATOSIS [None]
  - HYPERAEMIA [None]
  - INTESTINAL HAEMORRHAGE [None]
  - MENINGIOMA [None]
  - MUSCLE HYPERTROPHY [None]
  - NEURODEGENERATIVE DISORDER [None]
  - OBESITY [None]
  - OSTEOPOROSIS [None]
  - OVERDOSE [None]
  - PLEURAL EFFUSION [None]
  - PULMONARY CONGESTION [None]
  - RENAL CYST [None]
  - RENAL DISORDER [None]
  - RESTLESSNESS [None]
  - RIGHT VENTRICULAR FAILURE [None]
  - TRACHEOBRONCHITIS [None]
  - UTERINE LEIOMYOMA [None]
